FAERS Safety Report 7876845-2 (Version None)
Quarter: 2011Q4

REPORT INFORMATION
  Report Type: 
  Country: None (occurrence: None)
  Receive Date: 20111031
  Receipt Date: 20111024
  Transmission Date: 20120403
  Serious: Yes (Other)
  Sender: FDA-Public Use
  Company Number: PHEH2011US05786

PATIENT
  Sex: Female
  Weight: 86.168 kg

DRUGS (9)
  1. AMBIEN [Concomitant]
  2. COUMADIN [Concomitant]
     Indication: DEEP VEIN THROMBOSIS
     Dosage: UNK
     Dates: start: 20100201
  3. ZOMETA [Suspect]
     Indication: METASTASES TO BONE
     Dosage: 4 MG, QMO
     Route: 042
     Dates: start: 20100209, end: 20110721
  4. CARBOPLATIN [Concomitant]
     Indication: BREAST CANCER
     Dosage: UNK
     Dates: start: 20110201
  5. CHEMOTHERAPEUTICS [Concomitant]
  6. SYNTHROID [Concomitant]
  7. CALCIUM WITH VITAMIN D [Concomitant]
     Indication: DEPRESSION
     Dosage: UNK
     Dates: start: 20100201
  8. CELEXA [Concomitant]
     Indication: DEPRESSION
     Dosage: UNK
     Dates: start: 20100201
  9. GEMZAR [Concomitant]
     Route: 042

REACTIONS (7)
  - ERYTHEMA [None]
  - OSTEONECROSIS OF JAW [None]
  - EXPOSED BONE IN JAW [None]
  - APHAGIA [None]
  - SOFT TISSUE INFECTION [None]
  - SWELLING [None]
  - PURULENT DISCHARGE [None]
